FAERS Safety Report 9810991 (Version 4)
Quarter: 2015Q3

REPORT INFORMATION
  Report Type: Spontaneous
  Country: US (occurrence: US)
  Receive Date: 20140110
  Receipt Date: 20150727
  Transmission Date: 20151125
  Serious: Yes (Other)
  Sender: FDA-Public Use
  Company Number: US-SANOFI-AVENTIS-2013SA003981

PATIENT
  Age: 53 Year
  Sex: Male

DRUGS (4)
  1. PLAVIX [Suspect]
     Active Substance: CLOPIDOGREL BISULFATE
     Indication: ACUTE CORONARY SYNDROME
     Route: 048
     Dates: start: 20010101, end: 20111111
  2. PLAVIX [Suspect]
     Active Substance: CLOPIDOGREL BISULFATE
     Indication: STENT PLACEMENT
     Route: 048
     Dates: start: 20010101, end: 20111111
  3. WARFARIN [Concomitant]
     Active Substance: WARFARIN
     Dosage: DOSE: 1 (UNITS NOT REPORTED).
  4. BABY ASPIRIN [Concomitant]
     Active Substance: ASPIRIN

REACTIONS (3)
  - Asthenia [Unknown]
  - Gastrointestinal haemorrhage [Unknown]
  - Multiple injuries [Unknown]

NARRATIVE: CASE EVENT DATE: 201102
